FAERS Safety Report 15713718 (Version 3)
Quarter: 2019Q1

REPORT INFORMATION
  Report Type: Report from Study
  Country: DE (occurrence: DE)
  Receive Date: 20181212
  Receipt Date: 20190208
  Transmission Date: 20190417
  Serious: Yes (Congenital Anomaly, Other)
  Sender: FDA-Public Use
  Company Number: DE-BAYER-2015-390037

PATIENT
  Age: 24 Year
  Sex: Female
  Weight: 70 kg

DRUGS (24)
  1. TORASEMIDE [Suspect]
     Active Substance: TORSEMIDE
     Dosage: 100 MG, QD, GESTATIONAL WEEK 0-14
  2. SALBUTAMOL [Suspect]
     Active Substance: ALBUTEROL
     Dosage: GESTATIONAL WEEK 0-14
  3. MIFEGYNE [Concomitant]
     Active Substance: MIFEPRISTONE
     Dosage: UNK, 13.6 GESTATIONAL WEEK
     Route: 048
     Dates: start: 20120320, end: 20120320
  4. XARELTO [Suspect]
     Active Substance: RIVAROXABAN
     Indication: THROMBOSIS PROPHYLAXIS
     Dosage: GESTATIONAL WEEK 0-5
  5. ALISKIREN [Suspect]
     Active Substance: ALISKIREN
     Dosage: 300 MG, GESTATIONAL WEEK 0-5
  6. ENOXAPARIN [Suspect]
     Active Substance: ENOXAPARIN
     Dosage: GESTATIONAL WEEK 0-14
  7. PREDNISOLONE. [Suspect]
     Active Substance: PREDNISOLONE
     Dosage: 10 MG, BID, GESTATIONAL WEEK 0-14
  8. LOW MOLECULAR WEIGHT HEPARIN [Suspect]
     Active Substance: UNSPECIFIED INGREDIENT
  9. RAMIPRIL. [Suspect]
     Active Substance: RAMIPRIL
     Dosage: 20 MG, GESTATIONAL WEEK 0-13+6
  10. NICOTINE. [Suspect]
     Active Substance: NICOTINE
     Dosage: GESTATIONAL WEEK 0-14
  11. RITUXIMAB. [Suspect]
     Active Substance: RITUXIMAB
     Dosage: UNK, LAST TIME IN DECEMBER 2011: PRE OR PERICONCEPTIONAL
  12. CYTOTEC [Concomitant]
     Active Substance: MISOPROSTOL
     Indication: ABORTION INDUCED
     Dosage: UNK, GESTATIONAL WEEK 13.6
     Route: 048
     Dates: start: 20120320, end: 20120320
  13. ACETYLSALICYLIC ACID({=100 MG) [Suspect]
     Active Substance: ASPIRIN
     Dosage: 100 MG, QD, FROM GESTATIONAL WEEK 0-14
  14. TACROLIMUS. [Suspect]
     Active Substance: TACROLIMUS
     Dosage: 6 MG, QD, GESTATIONAL WEEK 0-14
  15. HYDROXYCHLOROQUINE [Suspect]
     Active Substance: HYDROXYCHLOROQUINE
     Dosage: 400 MG, QD, GESTATIONAL WEEK 0-14
  16. SIMVASTATIN. [Suspect]
     Active Substance: SIMVASTATIN
     Dosage: GESTATIONAL WEEK 0-14
  17. METAMIZOLE [Suspect]
     Active Substance: METAMIZOLE
     Dosage: GESTATIONAL WEEK 0-14
  18. DALTEPARIN SODIUM [Suspect]
     Active Substance: DALTEPARIN SODIUM
     Dosage: GESTATIONAL WEEK 6-14
  19. NOVAMINSULFON [Suspect]
     Active Substance: METAMIZOLE
     Dosage: UNK, TRIMESTER: FIRST; PROBABLY ONLY IN HOSPITAL IN WEEK 5
  20. HEPARIN LMW [Suspect]
     Active Substance: UNSPECIFIED INGREDIENT
  21. PANTOPRAZOLE [Suspect]
     Active Substance: PANTOPRAZOLE
     Dosage: 40 MG, QD, FROM GESTATIONAL WEEK 0-14
     Route: 048
  22. EZETIMIBE. [Suspect]
     Active Substance: EZETIMIBE
     Dosage: GESTATIONAL WEEK 0-14
  23. CLEXANE [Suspect]
     Active Substance: ENOXAPARIN SODIUM
     Dosage: 100 MG, BID
  24. CYCLOPHOSPHAMIDE. [Concomitant]
     Active Substance: CYCLOPHOSPHAMIDE
     Dosage: 3000 [MG CUMULATIVE]; PRECONCEPTIONAL 3000 MG CUMULATIVE (PRECONCEPTIONAL)
     Route: 042

REACTIONS (8)
  - Premature baby [Unknown]
  - Contraindicated product administered [None]
  - Drug ineffective [None]
  - Product monitoring error [None]
  - Renal vascular thrombosis [None]
  - Maternal exposure during pregnancy [None]
  - Vena cava thrombosis [None]
  - Abortion induced [None]
